FAERS Safety Report 11790021 (Version 1)
Quarter: 2015Q4

REPORT INFORMATION
  Report Type: Spontaneous
  Country: JP (occurrence: JP)
  Receive Date: 20151201
  Receipt Date: 20151201
  Transmission Date: 20160305
  Serious: Yes (Hospitalization)
  Sender: FDA-Public Use
  Company Number: JP-BAYER-2015-448731

PATIENT
  Age: 44 Year
  Sex: Female
  Weight: 47 kg

DRUGS (11)
  1. MYSLEE [Concomitant]
     Active Substance: ZOLPIDEM TARTRATE
     Dosage: DAILY DOSE 5 MG
     Route: 048
     Dates: start: 20130514
  2. CALONAL [Suspect]
     Active Substance: ACETAMINOPHEN
     Indication: RECTAL CANCER
     Dosage: 200 MG, PRN
     Dates: start: 20141107
  3. ACETAMINOPHEN. [Suspect]
     Active Substance: ACETAMINOPHEN
     Indication: RECTAL CANCER
     Dosage: 200 MG, PRN
     Dates: start: 20141107
  4. NEXIUM [Concomitant]
     Active Substance: ESOMEPRAZOLE MAGNESIUM
     Dosage: DAILY DOSE 10 MG
     Route: 048
     Dates: start: 20150810
  5. LOXONIN [Suspect]
     Active Substance: LOXOPROFEN SODIUM
     Indication: RECTAL CANCER
     Dosage: DAILY DOSE 180 MG
     Dates: start: 20150612, end: 20150904
  6. AZILSARTAN [Suspect]
     Active Substance: AZILSARTAN KAMEDOXOMIL
     Dosage: DAILY DOSE 40 MG
     Route: 048
     Dates: start: 20150827, end: 20150904
  7. ACETYLSALICYLIC ACID [Concomitant]
     Active Substance: ASPIRIN
  8. SENNOSIDE [Concomitant]
     Active Substance: SENNOSIDES
     Indication: RECTAL CANCER
     Dosage: DAILY DOSE 12 MG
     Route: 048
     Dates: start: 20150827
  9. TRAMAL [Concomitant]
     Active Substance: TRAMADOL
     Indication: RECTAL CANCER
     Dosage: DAILY DOSE 50 MG
     Route: 048
     Dates: start: 20150805
  10. STIVARGA [Suspect]
     Active Substance: REGORAFENIB
     Indication: RECTAL CANCER
     Dosage: 120 MG, QD ON FOR 3 WEEKS AND OFF FOR 1 WEEK
     Route: 048
     Dates: start: 20150825, end: 20150904
  11. DESYREL [Concomitant]
     Active Substance: TRAZODONE HYDROCHLORIDE
     Dosage: UNK
     Route: 048
     Dates: start: 20150828

REACTIONS (2)
  - Blood creatinine increased [Recovering/Resolving]
  - Erythema multiforme [Recovering/Resolving]

NARRATIVE: CASE EVENT DATE: 20150904
